FAERS Safety Report 9543116 (Version 1)
Quarter: 2013Q2

REPORT INFORMATION
  Report Type: Spontaneous
  Country: US (occurrence: None)
  Receive Date: 20130524
  Receipt Date: 20130524
  Transmission Date: 20140414
  Serious: No
  Sender: FDA-Public Use
  Company Number: PHEH2013US002892

PATIENT
  Age: 39 Year
  Sex: Male
  Weight: 90.7 kg

DRUGS (1)
  1. GILENYA (FINGOLIMOD) CAPSULE [Suspect]
     Indication: MULTIPLE SCLEROSIS
     Dosage: 0.5 MG, QD, ORAL
     Route: 048
     Dates: start: 20130131

REACTIONS (1)
  - Extrasystoles [None]
